FAERS Safety Report 16980477 (Version 1)
Quarter: 2019Q4

REPORT INFORMATION
  Report Type: Spontaneous
  Country: IN (occurrence: IN)
  Receive Date: 20191031
  Receipt Date: 20191031
  Transmission Date: 20200122
  Serious: Yes (Other)
  Sender: FDA-Public Use
  Company Number: IN-VIIV HEALTHCARE LIMITED-IN2019GSK191949

PATIENT
  Age: 21 Year
  Sex: Female

DRUGS (3)
  1. NEVIRAPINE. [Suspect]
     Active Substance: NEVIRAPINE
     Indication: HIV INFECTION
     Dosage: UNK
     Dates: start: 200906
  2. STAVUDINE. [Suspect]
     Active Substance: STAVUDINE
     Indication: HIV INFECTION
     Dosage: UNK
     Dates: start: 200906
  3. LAMIVUDINE. [Suspect]
     Active Substance: LAMIVUDINE
     Indication: HIV INFECTION
     Dosage: UNK
     Dates: start: 200906

REACTIONS (12)
  - Genital ulceration [Unknown]
  - Vulval cancer [Unknown]
  - Skin mass [Unknown]
  - Nodule [Unknown]
  - Anaemia [Unknown]
  - Genital discharge [Unknown]
  - Genital lesion [Unknown]
  - Genital odour [Unknown]
  - Lymphadenopathy [Unknown]
  - Tumour haemorrhage [Unknown]
  - Alveolar rhabdomyosarcoma [Unknown]
  - Hepatomegaly [Unknown]
